FAERS Safety Report 6319342-8 (Version None)
Quarter: 2009Q3

REPORT INFORMATION
  Report Type: 
  Country: None (occurrence: None)
  Receive Date: 20090822
  Receipt Date: 20080829
  Transmission Date: 20100115
  Serious: No
  Sender: FDA-Public Use
  Company Number: US-ABBOTT-08P-163-0473101-00

PATIENT
  Sex: Male
  Weight: 97.61 kg

DRUGS (7)
  1. NIASPAN [Suspect]
     Indication: BLOOD CHOLESTEROL INCREASED
     Route: 048
     Dates: start: 20080818, end: 20080821
  2. NIASPAN [Suspect]
     Route: 048
     Dates: start: 20080824
  3. ATACAN [Concomitant]
     Indication: HYPERTENSION
  4. VYTORIN [Concomitant]
     Indication: BLOOD CHOLESTEROL INCREASED
  5. METOPROLOL SUCCINATE [Concomitant]
     Indication: HYPERTENSION
  6. ASPIRIN [Concomitant]
     Indication: PROPHYLAXIS
  7. VIGRAN [Concomitant]
     Indication: VITAMIN SUPPLEMENTATION

REACTIONS (3)
  - DIZZINESS [None]
  - FLUSHING [None]
  - PAIN [None]
